FAERS Safety Report 8897648 (Version 3)
Quarter: 2012Q4

REPORT INFORMATION
  Report Type: Spontaneous
  Country: US (occurrence: None)
  Receive Date: 20121106
  Receipt Date: 20121128
  Transmission Date: 20130627
  Serious: Yes (Hospitalization, Other)
  Sender: FDA-Public Use
  Company Number: 2012/158

PATIENT
  Age: 57 Year
  Sex: Male
  Weight: 99.79 kg

DRUGS (5)
  1. CEPHALEXIN [Suspect]
     Indication: ANTIBIOTIC THERAPY
     Dates: start: 20121019, end: 20121020
  2. CEPHALEXIN [Suspect]
     Indication: POSTOPERATIVE CARE
     Dates: start: 20121019, end: 20121020
  3. LOSARTAN POTASSIUM (COZAAR) [Concomitant]
  4. VITAMIN D [Concomitant]
  5. 2 UNSPECIFIED ANTIPSYCHOTICS [Concomitant]

REACTIONS (4)
  - Diabetic neuropathy [None]
  - Bladder dysfunction [None]
  - Eructation [None]
  - Vomiting [None]
